FAERS Safety Report 8171858-8 (Version None)
Quarter: 2012Q1

REPORT INFORMATION
  Report Type: 
  Country: None (occurrence: None)
  Receive Date: 20120228
  Receipt Date: 20120220
  Transmission Date: 20120608
  Serious: No
  Sender: FDA-Public Use
  Company Number: US-BAYER-2012-016700

PATIENT
  Sex: Female

DRUGS (1)
  1. CIPRO [Suspect]
     Indication: URINARY TRACT INFECTION
     Dosage: 1500 MG, UNK
     Dates: start: 20120113, end: 20120120

REACTIONS (4)
  - SKIN DISCOLOURATION [None]
  - JOINT STIFFNESS [None]
  - OEDEMA PERIPHERAL [None]
  - PAIN [None]
